FAERS Safety Report 12877846 (Version 1)
Quarter: 2016Q4

REPORT INFORMATION
  Report Type: Spontaneous
  Country: TR (occurrence: TR)
  Receive Date: 20161024
  Receipt Date: 20161024
  Transmission Date: 20170207
  Serious: Yes (Other)
  Sender: FDA-Public Use
  Company Number: TR-TEVA-703506ISR

PATIENT
  Age: 40 Year
  Sex: Female

DRUGS (6)
  1. PYRAZINAMIDE. [Suspect]
     Active Substance: PYRAZINAMIDE
     Indication: TUBERCULOSIS
     Dosage: 30 MG/KG DAILY;
     Route: 065
  2. ISONIAZID. [Suspect]
     Active Substance: ISONIAZID
     Indication: TUBERCULOSIS
     Dosage: 300 MG/DAY, 2 MONTHS OF 4 DRUG REGIMEN THEN CHANGED TO 10 MONTHS OF 2 DRUG REGIMEN
     Route: 065
  3. RIFAMPICIN [Interacting]
     Active Substance: RIFAMPIN
     Dosage: IN A 2 DRUG REGIMEN
     Route: 065
  4. RIFAMPICIN [Interacting]
     Active Substance: RIFAMPIN
     Indication: TUBERCULOSIS
     Dosage: 600 MG/DAY, 2 MONTHS OF 4 DRUG REGIMEN THEN CHANGED TO 10 MONTHS OF 2 DRUG REGIMEN
     Route: 065
  5. ETHAMBUTOL [Suspect]
     Active Substance: ETHAMBUTOL HYDROCHLORIDE
     Indication: TUBERCULOSIS
     Dosage: 25 MG/KG DAILY;
     Route: 065
  6. METHYLPREDNISOLONE. [Suspect]
     Active Substance: METHYLPREDNISOLONE
     Route: 048

REACTIONS (3)
  - Paradoxical drug reaction [Recovering/Resolving]
  - Choroiditis [Recovering/Resolving]
  - Drug interaction [Recovering/Resolving]
